FAERS Safety Report 7540214-5 (Version None)
Quarter: 2011Q2

REPORT INFORMATION
  Report Type: 
  Country: None (occurrence: None)
  Receive Date: 20110610
  Receipt Date: 20091204
  Transmission Date: 20111010
  Serious: Yes (Hospitalization)
  Sender: FDA-Public Use
  Company Number: AT-CEPHALON-2011002919

PATIENT
  Sex: Male
  Weight: 80 kg

DRUGS (4)
  1. BENDAMUSTINE HCL [Suspect]
     Route: 042
     Dates: start: 20090629, end: 20090728
  2. BENDAMUSTINE HCL [Suspect]
     Route: 042
     Dates: start: 20090914, end: 20090915
  3. BENDAMUSTINE HCL [Suspect]
     Route: 042
     Dates: start: 20091027, end: 20091028
  4. CAMPATH [Suspect]
     Route: 058
     Dates: start: 20090629, end: 20091105

REACTIONS (1)
  - FEBRILE INFECTION [None]
